FAERS Safety Report 23740488 (Version 1)
Quarter: 2024Q2

REPORT INFORMATION
  Report Type: Spontaneous
  Country: CA (occurrence: CA)
  Receive Date: 20240415
  Receipt Date: 20240415
  Transmission Date: 20240716
  Serious: Yes (Life-Threatening, Disabling, Other)
  Sender: FDA-Public Use
  Company Number: CA-DENTSPLY-2024SCDP000097

PATIENT
  Age: 59 Year
  Sex: Female
  Weight: 40.369 kg

DRUGS (1)
  1. XYLOCAINE [Suspect]
     Active Substance: LIDOCAINE HYDROCHLORIDE
     Indication: Dental care
     Dosage: UNK
     Route: 030

REACTIONS (19)
  - Arrhythmia [None]
  - Blepharospasm [None]
  - Blindness [None]
  - Chest discomfort [None]
  - Chest pain [None]
  - Deafness [None]
  - Eye pain [None]
  - Glucose tolerance impaired [None]
  - Muscular weakness [None]
  - Ophthalmoplegia [None]
  - Proteinuria [None]
  - Renal injury [None]
  - Somnolence [None]
  - Hypotension [None]
  - Hypoaesthesia [None]
  - Dizziness [None]
  - Confusional state [None]
  - Respiratory depression [None]
  - Vision blurred [None]
